FAERS Safety Report 24525153 (Version 2)
Quarter: 2025Q1

REPORT INFORMATION
  Report Type: Spontaneous
  Country: US (occurrence: US)
  Receive Date: 20241019
  Receipt Date: 20250104
  Transmission Date: 20250409
  Serious: Yes (Disabling, Other)
  Sender: AUROBINDO
  Company Number: US-MLMSERVICE-20241001-PI211778-00101-1

PATIENT
  Age: 17 Year
  Sex: Female

DRUGS (2)
  1. CARBOPLATIN [Suspect]
     Active Substance: CARBOPLATIN
     Indication: Medulloblastoma
     Route: 065
  2. CISPLATIN [Suspect]
     Active Substance: CISPLATIN
     Indication: Medulloblastoma
     Route: 065

REACTIONS (1)
  - Deafness neurosensory [Not Recovered/Not Resolved]
